FAERS Safety Report 6442651-9 (Version None)
Quarter: 2009Q4

REPORT INFORMATION
  Report Type: 
  Country: None (occurrence: None)
  Receive Date: 20091117
  Receipt Date: 20091109
  Transmission Date: 20100525
  Serious: Yes (Hospitalization)
  Sender: FDA-Public Use
  Company Number: US-JNJFOC-20090902239

PATIENT
  Sex: Female
  Weight: 107.05 kg

DRUGS (4)
  1. DURAGESIC-100 [Suspect]
     Route: 062
     Dates: start: 20020101, end: 20090908
  2. DURAGESIC-100 [Suspect]
     Route: 062
     Dates: start: 20020101, end: 20090908
  3. DURAGESIC-100 [Suspect]
     Indication: PROCEDURAL PAIN
     Route: 062
     Dates: start: 20020101, end: 20090908
  4. PERCOCET [Concomitant]
     Indication: PAIN
     Dosage: 10/325 4-6 HOURS
     Route: 048

REACTIONS (6)
  - DRUG INEFFECTIVE [None]
  - INTERVERTEBRAL DISC DISORDER [None]
  - OFF LABEL USE [None]
  - PRODUCT ADHESION ISSUE [None]
  - PRODUCT QUALITY ISSUE [None]
  - WRONG TECHNIQUE IN DRUG USAGE PROCESS [None]
